FAERS Safety Report 9415714 (Version 1)
Quarter: 2013Q3

REPORT INFORMATION
  Report Type: Spontaneous
  Country: BR (occurrence: BR)
  Receive Date: 20130723
  Receipt Date: 20130723
  Transmission Date: 20140515
  Serious: Yes (Other)
  Sender: FDA-Public Use
  Company Number: BR-ABBOTT-13X-020-1120910-00

PATIENT
  Sex: Female
  Weight: 60 kg

DRUGS (5)
  1. DEPAKOTE [Suspect]
     Indication: EPILEPSY
     Dosage: ONE TABLET AT 7AM AND ONE TABLET AT 11PM
     Route: 048
     Dates: start: 200805
  2. DEPAKENE [Suspect]
     Indication: EPILEPSY
     Route: 048
     Dates: start: 1988
  3. DEPAKENE [Suspect]
     Route: 048
     Dates: end: 200805
  4. TEGRETOL [Concomitant]
     Indication: EPILEPSY
     Dosage: ONE TABLET AT 7AM, ONE AT 3PM AND ONE AT 11PM, TEGRETOL REPORTED PEDRITOL
     Route: 048
     Dates: end: 2011
  5. CARBAMAZEPINE [Concomitant]
     Indication: EPILEPSY
     Dosage: ONE TABLET AT 7AM, ONE AT 3PM AND ONE AT 11PM
     Route: 048
     Dates: start: 2011

REACTIONS (8)
  - Chronic lymphocytic leukaemia [Unknown]
  - Gastrointestinal carcinoma [Recovered/Resolved]
  - Leukaemia [Recovered/Resolved]
  - Convulsion [Recovered/Resolved]
  - Fluid retention [Recovered/Resolved]
  - Swelling [Recovering/Resolving]
  - Weight increased [Recovered/Resolved]
  - Chromosomal mutation [Unknown]
